FAERS Safety Report 9515032 (Version 1)
Quarter: 2013Q1

REPORT INFORMATION
  Report Type: Spontaneous
  Country: US (occurrence: None)
  Receive Date: 20130305
  Receipt Date: 20130305
  Transmission Date: 20140127
  Serious: Yes (Hospitalization, Other)
  Sender: FDA-Public Use
  Company Number: 163-21880-1212874

PATIENT
  Age: 82 Year
  Sex: Female
  Weight: 85.5 kg

DRUGS (1)
  1. REVLIMID [Suspect]
     Indication: PLASMA CELL MYELOMA
     Dosage: 10 MG, 14 IN 21 D, PO?9/14/2012 - TEMPORARILY INTERRUPTED
     Route: 048
     Dates: start: 20120914

REACTIONS (2)
  - Thrombosis [None]
  - Pulmonary thrombosis [None]
